FAERS Safety Report 8320037-X (Version None)
Quarter: 2012Q2

REPORT INFORMATION
  Report Type: 
  Country: None (occurrence: None)
  Receive Date: 20120427
  Receipt Date: 20120425
  Transmission Date: 20120825
  Serious: Yes (Death)
  Sender: FDA-Public Use
  Company Number: JP-ABBOTT-12P-087-0929513-00

PATIENT
  Sex: Male

DRUGS (1)
  1. LOPINAVIR/RITONAVIR [Suspect]
     Indication: PRODUCT USED FOR UNKNOWN INDICATION

REACTIONS (1)
  - IMMUNE RECONSTITUTION SYNDROME [None]
